FAERS Safety Report 12146988 (Version 1)
Quarter: 2016Q1

REPORT INFORMATION
  Report Type: Spontaneous
  Country: US (occurrence: US)
  Receive Date: 20160304
  Receipt Date: 20160304
  Transmission Date: 20160526
  Serious: No
  Sender: FDA-Public Use
  Company Number: US-ACTAVIS-2016-01729

PATIENT
  Sex: Female

DRUGS (1)
  1. TAMOXIFEN CITRATE (ACTAVIS LABORATORIES FL) [Suspect]
     Active Substance: TAMOXIFEN CITRATE
     Indication: BREAST CANCER METASTATIC
     Dosage: UNK, UNKNOWN
     Route: 065

REACTIONS (2)
  - Hallucination [Recovered/Resolved]
  - Malaise [Recovered/Resolved]
